FAERS Safety Report 10272718 (Version 1)
Quarter: 2014Q2

REPORT INFORMATION
  Report Type: Spontaneous
  Country: DE (occurrence: None)
  Receive Date: 20140627
  Receipt Date: 20140627
  Transmission Date: 20141212
  Serious: Yes (Death)
  Sender: FDA-Public Use
  Company Number: IPC201406-00309

PATIENT
  Age: 21 Year
  Sex: Female

DRUGS (5)
  1. METOCLOPRAMIDE HYDORCHLORIDE (METOCLOPRAMIDE HYDORCHLORIDE) (METOCLOPRAMIDE HYDORCHLORIDE) [Suspect]
  2. VALPROIC ACID (VALPROIC ACID) (VALPROIC ACID) [Suspect]
     Indication: PARTIAL SEIZURES
  3. CLOBAZAM (CLOBAZAM) (CLOBAZAM) [Suspect]
  4. PHENYLALANINE (PHENYLALANINE) (PHENYLALANINE) [Suspect]
  5. CHLORALHYDRATE (CHLORALHYDRATE) (CHLORALHYDRATE) [Suspect]

REACTIONS (1)
  - Hepatic failure [None]
